FAERS Safety Report 4722107-1 (Version None)
Quarter: 2005Q3

REPORT INFORMATION
  Report Type: 
  Country: None (occurrence: None)
  Receive Date: 20050722
  Receipt Date: 20050711
  Transmission Date: 20060218
  Serious: Yes (Other)
  Sender: FDA-Public Use
  Company Number: CH-BRISTOL-MYERS SQUIBB COMPANY-13036397

PATIENT
  Sex: Male

DRUGS (7)
  1. ATAZANAVIR [Suspect]
  2. STAVUDINE [Suspect]
  3. RITONAVIR [Suspect]
  4. LAMIVUDINE + ZIDOVUDINE [Suspect]
  5. TENOFOVIR [Suspect]
  6. LAMIVUDINE [Suspect]
  7. NELFINAVIR [Suspect]

REACTIONS (4)
  - BLOOD BILIRUBIN INCREASED [None]
  - CREATININE RENAL CLEARANCE DECREASED [None]
  - LIPOATROPHY [None]
  - MYALGIA [None]
